FAERS Safety Report 4920419-X (Version None)
Quarter: 2006Q1

REPORT INFORMATION
  Report Type: 
  Country: None (occurrence: None)
  Receive Date: 20060223
  Receipt Date: 20050517
  Transmission Date: 20060701
  Serious: Yes (Hospitalization)
  Sender: FDA-Public Use
  Company Number: 2005UW07610

PATIENT
  Age: 59 Year
  Sex: Male
  Weight: 100 kg

DRUGS (8)
  1. CRESTOR [Suspect]
     Route: 048
     Dates: start: 20040709, end: 20040711
  2. ZOCOR [Suspect]
  3. DILANTIN [Suspect]
     Dates: start: 20040721, end: 20040723
  4. LOTREL [Concomitant]
     Dosage: 10/20 MG
     Route: 048
  5. ATIVAN [Concomitant]
  6. LORTAB [Concomitant]
     Dosage: 5/500 MG
  7. ADVAIR DISKUS 100/50 [Concomitant]
     Dates: start: 20010101
  8. COMBIVENT [Concomitant]
     Route: 055

REACTIONS (20)
  - ANAEMIA VITAMIN B12 DEFICIENCY [None]
  - CHOLELITHIASIS [None]
  - CONVULSION [None]
  - DEMYELINATION [None]
  - GLIOSIS [None]
  - GRAND MAL CONVULSION [None]
  - HEPATIC STEATOSIS [None]
  - HYPOXIA [None]
  - JOINT RANGE OF MOTION DECREASED [None]
  - NUCLEAR MAGNETIC RESONANCE IMAGING BRAIN ABNORMAL [None]
  - OSTEOPENIA [None]
  - PERNICIOUS ANAEMIA [None]
  - RENAL FAILURE ACUTE [None]
  - RHABDOMYOLYSIS [None]
  - SCAR [None]
  - SPEECH DISORDER [None]
  - SPINAL COMPRESSION FRACTURE [None]
  - SPINAL FRACTURE [None]
  - SPINAL OSTEOARTHRITIS [None]
  - TREMOR [None]
